FAERS Safety Report 4952245-X (Version None)
Quarter: 2006Q1

REPORT INFORMATION
  Report Type: 
  Country: None (occurrence: None)
  Receive Date: 20060317
  Receipt Date: 20060307
  Transmission Date: 20060701
  Serious: Yes (Hospitalization)
  Sender: FDA-Public Use
  Company Number: 2006018862

PATIENT
  Age: 15 Month
  Sex: Female

DRUGS (2)
  1. AZITHROMYCIN [Suspect]
     Indication: PNEUMONIA
     Dosage: 10 MG/KG (10 MG/KG, 1 IN 1 D), ORAL
     Route: 048
  2. SINGULAIR [Concomitant]

REACTIONS (2)
  - DYSPNOEA [None]
  - URTICARIA [None]
